FAERS Safety Report 4392528-8 (Version None)
Quarter: 2004Q3

REPORT INFORMATION
  Report Type: 
  Country: None (occurrence: None)
  Receive Date: 20040701
  Receipt Date: 20040503
  Transmission Date: 20050211
  Serious: No
  Sender: FDA-Public Use
  Company Number: A04200400411

PATIENT
  Age: 77 Year
  Sex: Female

DRUGS (6)
  1. PLAVIX [Suspect]
     Indication: ARTERIAL STENT INSERTION
     Dosage: 75 MG OD ORAL
     Route: 048
     Dates: start: 20030801, end: 20040504
  2. BELOC ZOK MITE (METOPROLOL SUCCINATE) [Concomitant]
  3. KARVEA (IRBESARTAN) [Concomitant]
  4. SORTIS (ATORVASTATIN CALCIUM) [Concomitant]
  5. ISOKET RET. (ISOSORBIDE DINITRATE) [Concomitant]
  6. CORVATON (MOLSIDOMINE) [Concomitant]

REACTIONS (2)
  - HEPATIC NECROSIS [None]
  - HEPATITIS [None]
